FAERS Safety Report 13467520 (Version 1)
Quarter: 2017Q2

REPORT INFORMATION
  Report Type: Spontaneous
  Country: FR (occurrence: FR)
  Receive Date: 20170421
  Receipt Date: 20170421
  Transmission Date: 20170830
  Serious: Yes (Other)
  Sender: FDA-Public Use
  Company Number: FR-PFIZER INC-2017162407

PATIENT
  Age: 51 Year
  Sex: Female

DRUGS (22)
  1. SOLU-MEDROL [Suspect]
     Active Substance: METHYLPREDNISOLONE SODIUM SUCCINATE
     Dosage: 40 MG, UNK
     Dates: start: 20170216, end: 20170216
  2. FLUOROURACIL. [Suspect]
     Active Substance: FLUOROURACIL
     Dosage: 750 MG, CYCLIC
     Route: 041
     Dates: start: 20170125, end: 20170125
  3. SOLU-MEDROL [Suspect]
     Active Substance: METHYLPREDNISOLONE SODIUM SUCCINATE
     Dosage: 40 MG, UNK
     Dates: start: 20170125, end: 20170125
  4. ENDOXAN /00021101/ [Suspect]
     Active Substance: CYCLOPHOSPHAMIDE
     Indication: INVASIVE DUCTAL BREAST CARCINOMA
     Dosage: 840 MG, CYCLIC
     Route: 041
     Dates: start: 20161228, end: 20161228
  5. EMEND [Suspect]
     Active Substance: APREPITANT
     Dosage: 125 MG, UNK
     Route: 048
     Dates: start: 20170216, end: 20170216
  6. SOLU-MEDROL [Suspect]
     Active Substance: METHYLPREDNISOLONE SODIUM SUCCINATE
     Indication: CHEMOTHERAPY TOXICITY ATTENUATION
     Dosage: 40 MG, UNK
     Dates: start: 20161228, end: 20161228
  7. ENDOXAN /00021101/ [Suspect]
     Active Substance: CYCLOPHOSPHAMIDE
     Dosage: 750 MG, CYCLIC
     Route: 041
     Dates: start: 20170216, end: 20170216
  8. EMEND [Suspect]
     Active Substance: APREPITANT
     Dosage: 125 MG, UNK
     Route: 048
     Dates: start: 20170125, end: 20170125
  9. GRANOCYTE [Concomitant]
     Active Substance: LENOGRASTIM
     Indication: COLONY STIMULATING FACTOR PROPHYLAXIS
     Dosage: UNK
     Route: 058
  10. FLUOROURACIL. [Suspect]
     Active Substance: FLUOROURACIL
     Indication: INVASIVE DUCTAL BREAST CARCINOMA
     Dosage: 840 MG, CYCLIC
     Route: 041
     Dates: start: 20161228, end: 20161228
  11. PLITICAN [Suspect]
     Active Substance: ALIZAPRIDE HYDROCHLORIDE
     Indication: PROPHYLAXIS OF NAUSEA AND VOMITING
     Dosage: 100 MG, UNK
     Route: 042
     Dates: start: 20170125, end: 20170216
  12. PROPRANOLOL [Concomitant]
     Active Substance: PROPRANOLOL HYDROCHLORIDE
     Dosage: UNK
     Route: 048
  13. EMEND [Suspect]
     Active Substance: APREPITANT
     Indication: PROPHYLAXIS OF NAUSEA AND VOMITING
     Dosage: 125 MG, UNK
     Route: 048
     Dates: start: 20161228, end: 20161228
  14. FARMORUBICIN [Suspect]
     Active Substance: EPIRUBICIN HYDROCHLORIDE
     Indication: INVASIVE DUCTAL BREAST CARCINOMA
     Dosage: 170 MG, CYCLIC
     Route: 041
     Dates: start: 20161228, end: 20161228
  15. PRIMPERAN [Concomitant]
     Active Substance: METOCLOPRAMIDE HYDROCHLORIDE
     Indication: PROPHYLAXIS OF NAUSEA AND VOMITING
     Dosage: UNK
  16. FLUOROURACIL. [Suspect]
     Active Substance: FLUOROURACIL
     Dosage: 750 MG, CYCLIC
     Route: 041
     Dates: start: 20170216, end: 20170216
  17. FARMORUBICIN [Suspect]
     Active Substance: EPIRUBICIN HYDROCHLORIDE
     Dosage: 170 MG, CYCLIC
     Route: 041
     Dates: start: 20170125, end: 20170125
  18. FARMORUBICIN [Suspect]
     Active Substance: EPIRUBICIN HYDROCHLORIDE
     Dosage: 170 MG, CYCLIC
     Route: 041
     Dates: start: 20170216, end: 20170216
  19. ENDOXAN /00021101/ [Suspect]
     Active Substance: CYCLOPHOSPHAMIDE
     Dosage: 750 MG, CYCLIC
     Route: 041
     Dates: start: 20170125, end: 20170125
  20. ZOPHREN /00955301/ [Suspect]
     Active Substance: ONDANSETRON
     Indication: PROPHYLAXIS OF NAUSEA AND VOMITING
     Dosage: 8 MG, UNK
     Route: 048
     Dates: start: 20161228, end: 20161228
  21. ZOPHREN /00955301/ [Suspect]
     Active Substance: ONDANSETRON
     Dosage: 8 MG, UNK
     Route: 048
     Dates: start: 20170125, end: 20170125
  22. ZOPHREN /00955301/ [Suspect]
     Active Substance: ONDANSETRON
     Dosage: 8 MG, UNK
     Route: 048
     Dates: start: 20170216, end: 20170216

REACTIONS (10)
  - Migraine [Unknown]
  - Condition aggravated [Unknown]
  - Platelet count decreased [Unknown]
  - Transaminases increased [Recovered/Resolved]
  - Abdominal pain upper [Not Recovered/Not Resolved]
  - Constipation [Not Recovered/Not Resolved]
  - Fatigue [Unknown]
  - Leukopenia [Not Recovered/Not Resolved]
  - Neutropenia [Recovering/Resolving]
  - Mucosal inflammation [Not Recovered/Not Resolved]

NARRATIVE: CASE EVENT DATE: 2017
